FAERS Safety Report 4748846-4 (Version None)
Quarter: 2005Q3

REPORT INFORMATION
  Report Type: 
  Country: None (occurrence: None)
  Receive Date: 20050819
  Receipt Date: 20050714
  Transmission Date: 20060218
  Serious: Yes (Other)
  Sender: FDA-Public Use
  Company Number: US-GLAXOSMITHKLINE-A0566472A

PATIENT
  Age: 36 Year
  Sex: Female
  Weight: 54.5 kg

DRUGS (4)
  1. WELLBUTRIN [Suspect]
     Indication: DEPRESSION
     Route: 048
     Dates: start: 20050114, end: 20050705
  2. PROZAC [Concomitant]
     Dosage: 40MG PER DAY
     Route: 048
     Dates: start: 20050301
  3. ZYPREXA [Concomitant]
     Dosage: 10MG PER DAY
     Route: 048
     Dates: start: 20050101
  4. LITHIUM [Concomitant]
     Dosage: 1350MG PER DAY
     Dates: start: 20040601

REACTIONS (4)
  - AMNESIA [None]
  - GRAND MAL CONVULSION [None]
  - TONGUE BITING [None]
  - URINARY INCONTINENCE [None]
